FAERS Safety Report 5475416-5 (Version None)
Quarter: 2007Q4

REPORT INFORMATION
  Report Type: 
  Country: None (occurrence: None)
  Receive Date: 20071003
  Receipt Date: 20070926
  Transmission Date: 20080405
  Serious: Yes (Life-Threatening, Hospitalization)
  Sender: FDA-Public Use
  Company Number: PHBS2007BR16238

PATIENT
  Age: 53 Year
  Sex: Male

DRUGS (11)
  1. ALLOPURINOL [Concomitant]
     Indication: GOUT
     Dosage: 100 MG, BID
  2. ALLOPURINOL [Concomitant]
     Dosage: 200 MG, BID
  3. CYCLOSPORINE [Suspect]
     Indication: RENAL TRANSPLANT
     Dosage: UNK, UNK
     Route: 065
     Dates: start: 20040215
  4. ATENOLOL [Concomitant]
     Indication: HYPERTENSION
     Dosage: 50 MG, QD
     Route: 048
  5. ATENOLOL [Concomitant]
     Dosage: 50 MG, BID
     Route: 048
  6. ATENSINA [Concomitant]
     Dosage: 0.2 MG, TID
     Route: 048
  7. FOLIC ACID [Concomitant]
     Dosage: 5 MG, QD
     Route: 048
  8. OMEPRAZOLE [Concomitant]
     Dosage: 20 MG, QD
     Route: 048
  9. PREDNISONE [Concomitant]
     Dosage: 10 MG/D
  10. LASIX [Concomitant]
     Dosage: 40 MG 3 TIMES WEEKLY
     Route: 048
  11. ATORVASTATIN CALCIUM [Concomitant]
     Dosage: 20 MG, QD
     Route: 048

REACTIONS (13)
  - ABDOMINAL PAIN [None]
  - ANAEMIA [None]
  - ASTHENIA [None]
  - COMA [None]
  - CONVULSION [None]
  - DIARRHOEA [None]
  - GOUT [None]
  - HYPERCHOLESTEROLAEMIA [None]
  - NAUSEA [None]
  - TREMOR [None]
  - VENOUS ANEURYSM [None]
  - WALKING DISABILITY [None]
  - WEIGHT DECREASED [None]
